FAERS Safety Report 9513937 (Version 1)
Quarter: 2013Q3

REPORT INFORMATION
  Report Type: Spontaneous
  Country: AU (occurrence: AU)
  Receive Date: 20130910
  Receipt Date: 20130910
  Transmission Date: 20140515
  Serious: Yes (Hospitalization, Other)
  Sender: FDA-Public Use
  Company Number: AU-ELI_LILLY_AND_COMPANY-AU201309001679

PATIENT
  Age: 60 Year
  Sex: Male

DRUGS (1)
  1. AXIRON [Suspect]
     Dosage: 60 MG, QD
     Route: 062
     Dates: start: 20130523

REACTIONS (3)
  - Cerebrovascular accident [Unknown]
  - Atrial fibrillation [Unknown]
  - Stress [Unknown]
